FAERS Safety Report 25310995 (Version 1)
Quarter: 2025Q2

REPORT INFORMATION
  Report Type: Report from Study
  Country: US (occurrence: US)
  Receive Date: 20250514
  Receipt Date: 20250514
  Transmission Date: 20250717
  Serious: No
  Sender: ACADIA PHARMACEUTICALS
  Company Number: US-ACADIA PHARMACEUTICALS INC.-ACA-2025-PIM-005565

PATIENT
  Age: 72 Year
  Sex: Male

DRUGS (10)
  1. NUPLAZID [Suspect]
     Active Substance: PIMAVANSERIN TARTRATE
     Indication: Parkinson^s disease psychosis
     Dosage: 34 MILLIGRAM, QD
     Route: 048
     Dates: start: 20241119
  2. AMANTADINE [Concomitant]
     Active Substance: AMANTADINE
  3. SINEMET [Concomitant]
     Active Substance: CARBIDOPA\LEVODOPA
  4. OXYBUTYNIN [Concomitant]
     Active Substance: OXYBUTYNIN
  5. ATORVASTATIN [Concomitant]
     Active Substance: ATORVASTATIN
  6. CEFADROXIL [Concomitant]
     Active Substance: CEFADROXIL
  7. QUETIAPINE [Concomitant]
     Active Substance: QUETIAPINE
  8. IBUPROFEN [Concomitant]
     Active Substance: IBUPROFEN
  9. MINERALS\VITAMINS [Concomitant]
     Active Substance: MINERALS\VITAMINS
  10. SUPER B COMPLEX [AMINOBENZOIC ACID;BIOTIN;CALCIUM PANTOTHENATE;CHOLINE [Concomitant]

REACTIONS (1)
  - Sinusitis [Unknown]

NARRATIVE: CASE EVENT DATE: 20250502
